FAERS Safety Report 6374485-8 (Version None)
Quarter: 2009Q3

REPORT INFORMATION
  Report Type: 
  Country: None (occurrence: None)
  Receive Date: 20090924
  Receipt Date: 20090922
  Transmission Date: 20100115
  Serious: Yes (Hospitalization)
  Sender: FDA-Public Use
  Company Number: DE-BRISTOL-MYERS SQUIBB COMPANY-14303945

PATIENT
  Age: 44 Year
  Sex: Female
  Weight: 67 kg

DRUGS (3)
  1. CETUXIMAB [Suspect]
     Indication: NON-SMALL CELL LUNG CANCER
     Dosage: CETUXIMAB 2MG/ML 720 MG
     Route: 042
     Dates: start: 20080806
  2. CARBOPLATIN [Suspect]
     Indication: NON-SMALL CELL LUNG CANCER
     Dosage: AUC 5(631 MG 1 IN 3 W)
     Route: 042
     Dates: start: 20080806
  3. GEMCITABINE [Suspect]
     Indication: NON-SMALL CELL LUNG CANCER
     Dosage: 2160 MG(1200 MG/M2, 2 IN 3W)
     Route: 042
     Dates: start: 20080806

REACTIONS (2)
  - INFLUENZA LIKE ILLNESS [None]
  - INFUSION RELATED REACTION [None]
